FAERS Safety Report 11786350 (Version 1)
Quarter: 2015Q4

REPORT INFORMATION
  Report Type: Spontaneous
  Country: US (occurrence: US)
  Receive Date: 20151130
  Receipt Date: 20151130
  Transmission Date: 20160305
  Serious: Yes (Death)
  Sender: FDA-Public Use
  Company Number: US-PFIZER INC-2015401328

PATIENT
  Age: 46 Year
  Sex: Female

DRUGS (4)
  1. PROPANOLOL HCL [Suspect]
     Active Substance: PROPRANOLOL HYDROCHLORIDE
     Dosage: 40 MG, UNK (STANDING DOSES)
     Route: 048
  2. METHIMAZOLE. [Concomitant]
     Active Substance: METHIMAZOLE
     Dosage: 30 MG, UNK
     Route: 048
  3. PROPANOLOL HCL [Suspect]
     Active Substance: PROPRANOLOL HYDROCHLORIDE
     Dosage: UNK
     Route: 042
  4. POTASSIUM IODIDE [Concomitant]
     Active Substance: POTASSIUM IODIDE
     Dosage: 5 MG IN 5 ML, UNK (SATURATED SOLUTION) (ADMINISTERED 1 HOUR POSTMETHIMAZOLE DOSE)
     Route: 048

REACTIONS (3)
  - Multi-organ failure [Fatal]
  - Cardiac arrest [Fatal]
  - Bradycardia [Fatal]
